FAERS Safety Report 7491309-6 (Version None)
Quarter: 2011Q2

REPORT INFORMATION
  Report Type: 
  Country: None (occurrence: None)
  Receive Date: 20110519
  Receipt Date: 20110512
  Transmission Date: 20111010
  Serious: Yes (Other)
  Sender: FDA-Public Use
  Company Number: B0718505A

PATIENT
  Sex: Female

DRUGS (10)
  1. DUPHALAC [Concomitant]
     Route: 065
  2. LOVENOX [Concomitant]
     Route: 065
  3. FUMAFER [Concomitant]
     Route: 065
     Dates: end: 20110328
  4. ROCEPHIN [Concomitant]
     Dosage: 1G PER DAY
     Route: 042
     Dates: start: 20110317, end: 20110405
  5. FLAGYL [Concomitant]
     Dosage: 500MG THREE TIMES PER DAY
     Route: 048
     Dates: start: 20110317, end: 20110331
  6. ORAMORPH SR [Concomitant]
     Route: 065
  7. XANAX [Concomitant]
     Route: 065
  8. NAROPIN [Concomitant]
     Route: 065
  9. PAROXETINE HCL [Suspect]
     Dosage: 20MG PER DAY
     Route: 048
     Dates: end: 20110411
  10. MORPHINE SULFATE [Concomitant]
     Route: 065

REACTIONS (4)
  - HEPATITIS [None]
  - CHOLESTASIS [None]
  - HEPATOCELLULAR INJURY [None]
  - PYREXIA [None]
